FAERS Safety Report 5922778-8 (Version None)
Quarter: 2008Q4

REPORT INFORMATION
  Report Type: 
  Country: None (occurrence: None)
  Receive Date: 20081017
  Receipt Date: 20081002
  Transmission Date: 20090506
  Serious: Yes (Hospitalization)
  Sender: FDA-Public Use
  Company Number: DE-GENENTECH-269558

PATIENT
  Sex: Male

DRUGS (3)
  1. RITUXIMAB [Suspect]
     Indication: CHRONIC LYMPHOCYTIC LEUKAEMIA
     Dosage: 716 MG, UNK
     Route: 042
     Dates: start: 20080805
  2. RITUXIMAB [Suspect]
     Dosage: 955 MG, Q4W
     Dates: start: 20080903
  3. BENDAMUSTINE [Suspect]
     Indication: CHRONIC LYMPHOCYTIC LEUKAEMIA
     Dosage: 172 MG, 2/MONTH
     Route: 042
     Dates: start: 20080806

REACTIONS (1)
  - FEBRILE NEUTROPENIA [None]
